FAERS Safety Report 14929867 (Version 3)
Quarter: 2018Q4

REPORT INFORMATION
  Report Type: Report from Study
  Country: US (occurrence: US)
  Receive Date: 20180523
  Receipt Date: 20181210
  Transmission Date: 20190204
  Serious: Yes (Hospitalization)
  Sender: FDA-Public Use
  Company Number: US-ACTELION-A-US2018-172416

PATIENT
  Age: 86 Year
  Sex: Female
  Weight: 65.31 kg

DRUGS (3)
  1. AMLODIPINE [Concomitant]
     Active Substance: AMLODIPINE BESYLATE
  2. SILDENAFIL. [Concomitant]
     Active Substance: SILDENAFIL
     Dosage: 20 MG, TID
     Dates: start: 2015
  3. OPSUMIT [Suspect]
     Active Substance: MACITENTAN
     Indication: PULMONARY HYPERTENSION
     Dosage: 10 MG, QD
     Route: 048
     Dates: start: 20160218, end: 20181015

REACTIONS (4)
  - Pulmonary arterial wedge pressure increased [Unknown]
  - Oedema [Unknown]
  - Fluid overload [Unknown]
  - Arthritis [Unknown]

NARRATIVE: CASE EVENT DATE: 20161109
